FAERS Safety Report 6688848-4 (Version None)
Quarter: 2010Q2

REPORT INFORMATION
  Report Type: 
  Country: None (occurrence: None)
  Receive Date: 20100420
  Receipt Date: 20100406
  Transmission Date: 20101027
  Serious: Yes (Hospitalization)
  Sender: FDA-Public Use
  Company Number: ES-ELI_LILLY_AND_COMPANY-ES201004001468

PATIENT
  Sex: Female
  Weight: 76 kg

DRUGS (12)
  1. FORTEO [Suspect]
     Indication: OSTEOPOROSIS
     Dosage: 20 UG, DAILY (1/D)
     Route: 058
     Dates: start: 20100204
  2. MST [Concomitant]
     Indication: PAIN
     Dosage: 60 MG, DAILY (1/D)
     Route: 048
     Dates: start: 20080101
  3. SEVREDOL [Concomitant]
     Indication: PAIN
     Dosage: 10 MG, DAILY (1/D)
     Route: 048
     Dates: start: 20080101
  4. NOLOTIL [Concomitant]
     Indication: PAIN
     Dosage: UNK, AS NEEDED
     Route: 048
  5. VALIUM [Concomitant]
     Indication: PAIN
     Dosage: 10 MG, AS NEEDED
     Route: 065
  6. OMEPRAZOLE [Concomitant]
     Dosage: 20 MG, DAILY (1/D)
     Route: 048
  7. MASTICAL D [Concomitant]
     Indication: OSTEOPOROSIS
     Dosage: UNK, 2/D
     Route: 048
  8. LEVOTHYROXINE SODIUM [Concomitant]
     Indication: HYPOTHYROIDISM
     Dosage: 125 MG, DAILY (1/D)
     Route: 048
  9. CLONAZEPAM [Concomitant]
     Indication: TREMOR
     Dosage: 0.5 MG, DAILY (1/D)
     Route: 048
  10. ZAMENE [Concomitant]
     Dosage: 6 MG, DAILY (1/D)
     Route: 048
  11. FLUOXETINA [Concomitant]
     Dosage: 20 MG, 2/D
     Route: 048
  12. POTASSIUM [Concomitant]
     Dosage: 600 MG, DAILY (1/D)
     Route: 048

REACTIONS (3)
  - FALL [None]
  - TREMOR [None]
  - WRIST FRACTURE [None]
